FAERS Safety Report 12783501 (Version 1)
Quarter: 2016Q3

REPORT INFORMATION
  Report Type: Spontaneous
  Country: US (occurrence: US)
  Receive Date: 20160927
  Receipt Date: 20160927
  Transmission Date: 20161109
  Serious: Yes (Other)
  Sender: FDA-Public Use
  Company Number: None

PATIENT
  Age: 55 Year
  Sex: Female
  Weight: 90.9 kg

DRUGS (15)
  1. PRENATAL VITAMIN GUMMIES [Concomitant]
  2. MUPIROCIN 2% OINTMENT [Suspect]
     Active Substance: MUPIROCIN
     Indication: SINUSITIS
     Dosage: ?          OTHER ROUTE:SWABBED IN NOSE?
  3. LEVOTHYROXINE. [Concomitant]
     Active Substance: LEVOTHYROXINE
  4. IMMITREX [Concomitant]
  5. ALBUTEROL. [Concomitant]
     Active Substance: ALBUTEROL
  6. LIDODERM [Concomitant]
     Active Substance: LIDOCAINE
  7. FIBER GUMMIES [Concomitant]
  8. OXYCODONE [Concomitant]
     Active Substance: OXYCODONE
  9. BOSTON SCIENTIFIC SPINAL NERVE STIMULATOR [Concomitant]
  10. KADIAN [Concomitant]
     Active Substance: MORPHINE SULFATE
  11. ZOLOFT [Concomitant]
     Active Substance: SERTRALINE HYDROCHLORIDE
  12. MUPIROCIN 2% OINTMENT [Suspect]
     Active Substance: MUPIROCIN
     Indication: STAPHYLOCOCCAL INFECTION
     Dosage: ?          OTHER ROUTE:SWABBED IN NOSE?
  13. ZYRTEC [Concomitant]
     Active Substance: CETIRIZINE HYDROCHLORIDE
  14. CELEBREX [Concomitant]
     Active Substance: CELECOXIB
  15. ZOFRAN [Concomitant]
     Active Substance: ONDANSETRON HYDROCHLORIDE

REACTIONS (8)
  - Application site pain [None]
  - Dysgeusia [None]
  - Vomiting [None]
  - Application site pruritus [None]
  - Anosmia [None]
  - Nausea [None]
  - Pain [None]
  - Headache [None]

NARRATIVE: CASE EVENT DATE: 20160926
